FAERS Safety Report 9464247 (Version 2)
Quarter: 2013Q3

REPORT INFORMATION
  Report Type: Spontaneous
  Country: BR (occurrence: BR)
  Receive Date: 20130819
  Receipt Date: 20130827
  Transmission Date: 20140515
  Serious: Yes (Hospitalization, Other)
  Sender: FDA-Public Use
  Company Number: BR-ELI_LILLY_AND_COMPANY-BR201308003796

PATIENT
  Sex: Female
  Weight: 52 kg

DRUGS (7)
  1. HUMALOG [Suspect]
     Indication: TYPE 1 DIABETES MELLITUS
     Dosage: UNK, OTHER
     Route: 058
  2. HUMULIN N [Suspect]
     Indication: TYPE 1 DIABETES MELLITUS
     Dosage: 20 IU, EACH MORNING
     Route: 058
  3. HUMULIN N [Suspect]
     Dosage: 15 IU, EACH EVENING
     Route: 058
  4. HUMULIN N [Suspect]
     Dosage: 20 IU, EACH MORNING
     Route: 058
  5. HUMULIN N [Suspect]
     Dosage: 15 IU, EACH EVENING
     Route: 058
  6. LEVOID [Concomitant]
     Indication: THYROID DISORDER
     Dosage: 50 DF, UNKNOWN
  7. DIANE [Concomitant]
     Indication: OVARIAN CYST
     Dosage: UNK, UNKNOWN
     Route: 065

REACTIONS (10)
  - Urinary tract infection [Unknown]
  - Blood glucose increased [Not Recovered/Not Resolved]
  - Dyspnoea [Unknown]
  - Abdominal pain [Unknown]
  - Injection site pain [Unknown]
  - Injection site mass [Unknown]
  - Abdominal distension [Unknown]
  - White blood cell disorder [Unknown]
  - Drug ineffective [Recovered/Resolved]
  - Blood glucose increased [Recovered/Resolved]
